FAERS Safety Report 21505062 (Version 1)
Quarter: 2022Q4

REPORT INFORMATION
  Report Type: Spontaneous
  Country: US (occurrence: None)
  Receive Date: 20221025
  Receipt Date: 20221025
  Transmission Date: 20230113
  Serious: No
  Sender: FDA-Public Use
  Company Number: None

PATIENT
  Sex: Male

DRUGS (1)
  1. HUMIRA [Suspect]
     Active Substance: ADALIMUMAB
     Indication: Crohn^s disease
     Dosage: 40MG  EVERY 10 DAYS SQ?
     Route: 058
     Dates: start: 20190723

REACTIONS (3)
  - Skin exfoliation [None]
  - Diarrhoea [None]
  - Therapeutic product effect decreased [None]
